FAERS Safety Report 8131113-9 (Version None)
Quarter: 2012Q1

REPORT INFORMATION
  Report Type: 
  Country: None (occurrence: None)
  Receive Date: 20120207
  Receipt Date: 20120125
  Transmission Date: 20120608
  Serious: Yes (Hospitalization, Other)
  Sender: FDA-Public Use
  Company Number: WAES 1201USA03745

PATIENT
  Age: 66 Year
  Sex: Male
  Weight: 100.6985 kg

DRUGS (10)
  1. ASPIRIN [Concomitant]
  2. LANTUS [Concomitant]
  3. PLACEBO [Suspect]
     Indication: ACUTE CORONARY SYNDROME
     Dates: start: 20080203
  4. EZETIMIBE/SIMVASTATIN [Suspect]
     Indication: ACUTE CORONARY SYNDROME
     Dosage: 10-40 MG/DAILY/PO
     Route: 048
     Dates: start: 20080203
  5. PLACEBO [Suspect]
     Indication: ACUTE CORONARY SYNDROME
     Route: 048
     Dates: start: 20080203
  6. ISOSORBIDE MONONITRATE [Concomitant]
  7. SERTRALINE HYDROCHLORIDE [Concomitant]
  8. FERROUS SULFATE TAB [Concomitant]
  9. GLYBURIDE [Concomitant]
  10. METOCLOPRAMIDE [Concomitant]

REACTIONS (1)
  - PROSTATE CANCER [None]
